FAERS Safety Report 7407044-6 (Version None)
Quarter: 2011Q2

REPORT INFORMATION
  Report Type: 
  Country: None (occurrence: None)
  Receive Date: 20110411
  Receipt Date: 20110401
  Transmission Date: 20111010
  Serious: Yes (Other)
  Sender: FDA-Public Use
  Company Number: BR-ROCHE-346283

PATIENT
  Age: 30 Year
  Sex: Male

DRUGS (2)
  1. ROACUTAN [Suspect]
     Indication: ACNE
     Route: 048
     Dates: start: 20020920, end: 20030501
  2. ROACUTAN [Suspect]
     Route: 048

REACTIONS (2)
  - GINGIVAL RECESSION [None]
  - ACNE [None]
